FAERS Safety Report 7340901-8 (Version None)
Quarter: 2011Q1

REPORT INFORMATION
  Report Type: 
  Country: None (occurrence: None)
  Receive Date: 20110309
  Receipt Date: 20110209
  Transmission Date: 20110831
  Serious: No
  Sender: FDA-Public Use
  Company Number: US-ABBOTT-11P-163-0704960-00

PATIENT
  Sex: Female
  Weight: 68.1 kg

DRUGS (6)
  1. LUPRON DEPOT [Suspect]
     Indication: UTERINE LEIOMYOMA
     Route: 050
     Dates: start: 20100915
  2. ALLERGY SHOTS [Concomitant]
     Indication: ALLERGY TO ANIMAL
  3. IRON SUPPLEMENT [Concomitant]
     Indication: BLOOD IRON DECREASED
  4. MULTI-VITAMIN [Concomitant]
     Indication: PRODUCT USED FOR UNKNOWN INDICATION
  5. LUPRON DEPOT [Suspect]
     Dates: start: 20101205
  6. ALLERGY SHOTS [Concomitant]
     Indication: HOUSE DUST ALLERGY

REACTIONS (3)
  - ASTHENIA [None]
  - MYALGIA [None]
  - PAIN IN EXTREMITY [None]
